FAERS Safety Report 9392011 (Version 1)
Quarter: 2013Q3

REPORT INFORMATION
  Report Type: Spontaneous
  Country: US (occurrence: US)
  Receive Date: 20130709
  Receipt Date: 20130709
  Transmission Date: 20140515
  Serious: Yes (Hospitalization, Other)
  Sender: FDA-Public Use
  Company Number: CHPA2013US010748

PATIENT
  Age: 37 Year
  Sex: Male

DRUGS (1)
  1. MAALOX ANTACID/ANTIGAS MAX QDTABS ASST [Suspect]
     Indication: FLATULENCE
     Dosage: UNK, UNK
     Route: 048
     Dates: start: 2005

REACTIONS (11)
  - Infection [Recovering/Resolving]
  - Colitis [Recovering/Resolving]
  - Injury [Unknown]
  - Spinal fracture [Unknown]
  - Condition aggravated [Recovering/Resolving]
  - Diabetes mellitus [Unknown]
  - Blood glucose increased [Unknown]
  - Pain [Recovering/Resolving]
  - Diarrhoea [Recovered/Resolved]
  - Epigastric discomfort [Not Recovered/Not Resolved]
  - Expired drug administered [Unknown]
